FAERS Safety Report 6531200-2 (Version None)
Quarter: 2010Q1

REPORT INFORMATION
  Report Type: 
  Country: None (occurrence: None)
  Receive Date: 20100108
  Receipt Date: 20100105
  Transmission Date: 20100710
  Serious: Yes (Other)
  Sender: FDA-Public Use
  Company Number: GB-ROCHE-677939

PATIENT
  Sex: Male

DRUGS (3)
  1. ISOTRETINOIN [Suspect]
     Indication: ACNE
     Route: 048
     Dates: start: 20070928, end: 20071119
  2. ALBUTEROL [Concomitant]
     Route: 055
     Dates: start: 19950101
  3. SYMBICORT [Concomitant]
     Route: 055
     Dates: start: 20050124

REACTIONS (3)
  - DEPRESSION [None]
  - ERECTILE DYSFUNCTION [None]
  - SUICIDAL IDEATION [None]
